FAERS Safety Report 20156467 (Version 1)
Quarter: 2021Q4

REPORT INFORMATION
  Report Type: Other
  Country: US (occurrence: None)
  Receive Date: 20211207
  Receipt Date: 20211207
  Transmission Date: 20220303
  Serious: Yes (Other)
  Sender: FDA-Public Use
  Company Number: US-ROCHE-2969570

PATIENT

DRUGS (1)
  1. CAPECITABINE [Suspect]
     Active Substance: CAPECITABINE
     Indication: Oesophageal carcinoma
     Route: 048

REACTIONS (36)
  - Neutropenia [Unknown]
  - Dysphagia [Unknown]
  - Oesophageal pain [Unknown]
  - Oesophagitis [Unknown]
  - Nausea [Unknown]
  - Fatigue [Unknown]
  - Obstruction gastric [Unknown]
  - Aspiration [Unknown]
  - Erythema multiforme [Unknown]
  - Oesophageal obstruction [Unknown]
  - Pain [Unknown]
  - Radiation skin injury [Unknown]
  - Decreased appetite [Unknown]
  - Atrial fibrillation [Unknown]
  - Diarrhoea [Unknown]
  - Dry mouth [Unknown]
  - Dyspepsia [Unknown]
  - Stomatitis [Unknown]
  - Abdominal pain upper [Unknown]
  - Vomiting [Unknown]
  - Non-cardiac chest pain [Unknown]
  - Stoma site infection [Unknown]
  - Weight decreased [Unknown]
  - Dehydration [Unknown]
  - Back pain [Unknown]
  - Dysgeusia [Unknown]
  - Peripheral sensory neuropathy [Unknown]
  - Cough [Unknown]
  - Dyspnoea [Unknown]
  - Dysphonia [Unknown]
  - Laryngitis [Unknown]
  - Pharyngitis [Unknown]
  - Laryngeal pain [Unknown]
  - Oropharyngeal pain [Unknown]
  - Pigmentation disorder [Unknown]
  - Hypotension [Unknown]
